FAERS Safety Report 6601078-7 (Version None)
Quarter: 2010Q1

REPORT INFORMATION
  Report Type: 
  Country: None (occurrence: None)
  Receive Date: 20100225
  Receipt Date: 20100216
  Transmission Date: 20100710
  Serious: Yes (Other)
  Sender: FDA-Public Use
  Company Number: PHHY2010AT09163

PATIENT
  Sex: Female

DRUGS (2)
  1. ACLASTA [Suspect]
     Route: 042
  2. ANTICOAGULANTS [Concomitant]
     Indication: ATRIAL FLUTTER

REACTIONS (1)
  - CEREBROVASCULAR ACCIDENT [None]
